FAERS Safety Report 8030816-4 (Version None)
Quarter: 2012Q1

REPORT INFORMATION
  Report Type: 
  Country: None (occurrence: None)
  Receive Date: 20120109
  Receipt Date: 20120103
  Transmission Date: 20120608
  Serious: Yes (Hospitalization)
  Sender: FDA-Public Use
  Company Number: FR-PFIZER INC-2012000617

PATIENT
  Age: 42 Year
  Sex: Male

DRUGS (12)
  1. ATARAX [Concomitant]
     Dosage: UNK
     Dates: start: 20110909
  2. TRAMADOL HCL [Suspect]
     Dosage: UNK
     Dates: start: 20110905, end: 20110911
  3. LOVENOX [Concomitant]
     Dosage: UNK
     Dates: start: 20110905
  4. ZOVIRAX [Suspect]
     Dosage: 600 MG, 3X/DAY
     Dates: start: 20110907, end: 20110910
  5. ZOVIRAX [Suspect]
     Dosage: 600 MG, 3X/DAY
     Dates: start: 20110913
  6. PREDNISONE TAB [Concomitant]
     Dosage: 50 MG, 1X/DAY
     Dates: start: 20110905, end: 20110907
  7. ZOVIRAX [Suspect]
     Dosage: 1200 MG, 3X/DAY
     Dates: start: 20110910, end: 20110912
  8. NEXIUM [Concomitant]
     Dosage: UNK
     Dates: start: 20110905
  9. PIPERACILLIN AND TAZOBACTAM [Suspect]
     Indication: NOSOCOMIAL INFECTION
     Dosage: UNK
     Dates: start: 20110911
  10. CIPROFLOXACIN [Suspect]
     Indication: NOSOCOMIAL INFECTION
     Dosage: UNK
     Dates: start: 20110911
  11. DIPROSONE [Concomitant]
     Dosage: UNK
     Dates: start: 20110909
  12. OXACILLIN [Concomitant]
     Indication: NOSOCOMIAL INFECTION
     Dosage: UNK
     Dates: start: 20110911

REACTIONS (2)
  - AGITATION [None]
  - AGGRESSION [None]
